FAERS Safety Report 26211820 (Version 1)
Quarter: 2025Q4

REPORT INFORMATION
  Report Type: Spontaneous
  Country: EU (occurrence: EU)
  Receive Date: 20251230
  Receipt Date: 20251230
  Transmission Date: 20260118
  Serious: Yes (Other)
  Sender: ALKEM
  Company Number: EU-ALKEM LABORATORIES LIMITED-IT-ALKEM-2025-11376

PATIENT
  Age: 63 Year
  Sex: Male

DRUGS (3)
  1. CLOPIDOGREL [Suspect]
     Active Substance: CLOPIDOGREL BISULFATE
     Indication: Acute myocardial infarction
     Dosage: UNK
     Route: 065
     Dates: start: 202302
  2. APIXABAN [Suspect]
     Active Substance: APIXABAN
     Indication: Acute myocardial infarction
     Dosage: 5 MILLIGRAM, BID (ON DAY 16)
     Route: 065
  3. WARFARIN [Suspect]
     Active Substance: WARFARIN
     Indication: Acute myocardial infarction
     Dosage: UNK
     Route: 065
     Dates: start: 202302

REACTIONS (2)
  - Cerebral haemorrhage [Unknown]
  - Cerebellar microhaemorrhage [Unknown]
